FAERS Safety Report 18858377 (Version 8)
Quarter: 2021Q3

REPORT INFORMATION
  Report Type: Other
  Country: GB (occurrence: GB)
  Receive Date: 20210208
  Receipt Date: 20210906
  Transmission Date: 20211014
  Serious: Yes (Other)
  Sender: FDA-Public Use
  Company Number: GB-MACLEODS PHARMA UK LTD-MAC2021030045

PATIENT

DRUGS (4)
  1. EVOTAZ [Suspect]
     Active Substance: ATAZANAVIR SULFATE\COBICISTAT
     Indication: HIV INFECTION
     Dosage: 1 DOSAGE FORM, QD, ONE COURSE, TAB/CAPS, PRIOR TO CONCEPTION, FIRST TRIMESTER
     Route: 048
     Dates: start: 20171014, end: 20190204
  2. ATAZANAVIR AUROBINDO [Suspect]
     Active Substance: ATAZANAVIR
     Indication: HIV INFECTION
     Dosage: 300 MILLIGRAM, QD, 1 COURSE, FIRST TRIMESTER, GESTATION PERIOD AT EXPOSURE 10 WEEKS
     Route: 048
     Dates: start: 20190205
  3. EMTRICITABINE/TENOFOVIR DISOPROXIL [Suspect]
     Active Substance: EMTRICITABINE\TENOFOVIR DISOPROXIL
     Indication: HIV INFECTION
     Dosage: 1 DOSAGE FORM, QD, 1 COURSE, PRIOR TO CONCEPTION, FIRST TRIMESTER, TAB/CAPS
     Route: 048
     Dates: start: 20101110
  4. RITONAVIR. [Suspect]
     Active Substance: RITONAVIR
     Indication: HIV INFECTION
     Dosage: UNK UNK, QD,  100 MG/KG/HR, 1 COURSE, FIRST TRIMESTER. GESTATION PERIOD AT EXPOSURE 10 WEEKS
     Route: 048
     Dates: start: 20190205

REACTIONS (3)
  - Maternal exposure during pregnancy [Unknown]
  - Abortion induced [Unknown]
  - Menstruation irregular [Unknown]

NARRATIVE: CASE EVENT DATE: 20181127
